FAERS Safety Report 24369740 (Version 1)
Quarter: 2024Q3

REPORT INFORMATION
  Report Type: Report from Study
  Country: VN (occurrence: VN)
  Receive Date: 20240927
  Receipt Date: 20240927
  Transmission Date: 20241017
  Serious: Yes (Death, Other)
  Sender: ROCHE
  Company Number: VN-ROCHE-10000086746

PATIENT

DRUGS (5)
  1. MYCOPHENOLATE MOFETIL [Suspect]
     Active Substance: MYCOPHENOLATE MOFETIL
     Indication: Systemic lupus erythematosus
     Route: 065
  2. AZATHIOPRINE [Suspect]
     Active Substance: AZATHIOPRINE
     Indication: Systemic lupus erythematosus
     Route: 065
  3. CYCLOPHOSPHAMIDE [Suspect]
     Active Substance: CYCLOPHOSPHAMIDE
     Indication: Systemic lupus erythematosus
     Route: 065
  4. METHOTREXATE [Suspect]
     Active Substance: METHOTREXATE
     Indication: Systemic lupus erythematosus
     Route: 065
  5. HYDROXYCHLOROQUINE [Suspect]
     Active Substance: HYDROXYCHLOROQUINE
     Indication: Systemic lupus erythematosus
     Route: 065

REACTIONS (20)
  - Central nervous system infection [Unknown]
  - Skin infection [Unknown]
  - Infection [Unknown]
  - Osteomyelitis [Unknown]
  - Arthritis infective [Unknown]
  - Respiratory tract infection [Unknown]
  - Kidney infection [Unknown]
  - Urinary tract infection [Unknown]
  - Ear, nose and throat infection [Unknown]
  - Gastrointestinal infection [Unknown]
  - Sepsis [Unknown]
  - Septic shock [Unknown]
  - Staphylococcal infection [Unknown]
  - Pseudomonas infection [Unknown]
  - Escherichia infection [Unknown]
  - Pneumonia klebsiella [Unknown]
  - Acinetobacter infection [Unknown]
  - Salmonellosis [Unknown]
  - Tuberculosis [Unknown]
  - Multiple organ dysfunction syndrome [Fatal]
